FAERS Safety Report 8547769-2 (Version None)
Quarter: 2012Q3

REPORT INFORMATION
  Report Type: 
  Country: None (occurrence: None)
  Receive Date: 20120727
  Receipt Date: 20111230
  Transmission Date: 20120928
  Serious: Yes (Hospitalization)
  Sender: FDA-Public Use
  Company Number: US-ASTRAZENECA-2012SE00014

PATIENT
  Age: 28 Year
  Sex: Female
  Weight: 95.3 kg

DRUGS (1)
  1. SEROQUEL [Suspect]
     Indication: BIPOLAR DISORDER
     Dosage: 300 MG AT NIGHT AND 50 MG MORNING,TOTAL 350 MG
     Route: 048
     Dates: start: 20100801, end: 20101101

REACTIONS (2)
  - DRUG DOSE OMISSION [None]
  - DEPRESSION [None]
